FAERS Safety Report 7529284-8 (Version None)
Quarter: 2011Q2

REPORT INFORMATION
  Report Type: 
  Country: None (occurrence: None)
  Receive Date: 20110607
  Receipt Date: 20110324
  Transmission Date: 20111010
  Serious: No
  Sender: FDA-Public Use
  Company Number: US-TYCO HEALTHCARE/MALLINCKRODT-T201100661

PATIENT
  Sex: Male

DRUGS (1)
  1. EXALGO [Suspect]
     Indication: PAIN
     Dosage: 12 MG, UNK

REACTIONS (1)
  - DRUG INEFFECTIVE [None]
